FAERS Safety Report 12676334 (Version 1)
Quarter: 2016Q3

REPORT INFORMATION
  Report Type: Spontaneous
  Country: US (occurrence: US)
  Receive Date: 20160823
  Receipt Date: 20160823
  Transmission Date: 20161109
  Serious: No
  Sender: FDA-Public Use
  Company Number: US-PFIZER INC-2016394687

PATIENT
  Age: 37 Year
  Sex: Female

DRUGS (1)
  1. IBRANCE [Suspect]
     Active Substance: PALBOCICLIB
     Dosage: 125 MG, CYCLIC (1 CAP Q DAY X 21 DAYS)
     Dates: start: 20160804

REACTIONS (4)
  - Back pain [Unknown]
  - Burning sensation [Unknown]
  - Pain in extremity [Unknown]
  - Arthralgia [Unknown]
